FAERS Safety Report 9474071 (Version 1)
Quarter: 2013Q3

REPORT INFORMATION
  Report Type: Spontaneous
  Country: US (occurrence: None)
  Receive Date: 20130820
  Receipt Date: 20130820
  Transmission Date: 20140515
  Serious: Yes (Other)
  Sender: FDA-Public Use
  Company Number: 2012SA080001

PATIENT
  Sex: Female

DRUGS (1)
  1. CAPZASIN NO MESS APPLICATOR [Suspect]
     Indication: ARTHRALGIA
     Dates: start: 20130729

REACTIONS (4)
  - Pain [None]
  - Screaming [None]
  - Burns second degree [None]
  - Chemical injury [None]
